FAERS Safety Report 6636640-9 (Version None)
Quarter: 2010Q1

REPORT INFORMATION
  Report Type: 
  Country: None (occurrence: None)
  Receive Date: 20100316
  Receipt Date: 20100309
  Transmission Date: 20100710
  Serious: Yes (Death)
  Sender: FDA-Public Use
  Company Number: A0341927A

PATIENT
  Age: 82 Year
  Sex: Male

DRUGS (11)
  1. AVANDIA [Suspect]
     Dosage: 4MG PER DAY
     Route: 048
     Dates: start: 20000329, end: 20000601
  2. AVANDIA [Suspect]
     Dosage: 8MG PER DAY
     Route: 048
     Dates: start: 20000601
  3. AMARYL [Concomitant]
     Dates: start: 19990501
  4. SYNTHROID [Concomitant]
     Dates: start: 19750101
  5. ZESTRIL [Concomitant]
     Dates: start: 19981001
  6. PREVACID [Concomitant]
     Route: 048
     Dates: start: 19990501
  7. CORTISONE ACETATE [Concomitant]
     Dates: start: 19750101
  8. ANDROGEL [Concomitant]
     Dates: start: 20001001
  9. ASPIRIN [Concomitant]
     Route: 048
     Dates: start: 19930101
  10. METOPROLOL TARTRATE [Concomitant]
     Route: 048
     Dates: start: 19930101
  11. RANITIDINE [Concomitant]
     Route: 048
     Dates: start: 19990101

REACTIONS (7)
  - ACUTE HEPATIC FAILURE [None]
  - ASTHENIA [None]
  - COMA [None]
  - HEPATIC ENCEPHALOPATHY [None]
  - HEPATITIS [None]
  - MALAISE [None]
  - NAUSEA [None]
